FAERS Safety Report 21270175 (Version 1)
Quarter: 2022Q3

REPORT INFORMATION
  Report Type: Spontaneous
  Country: US (occurrence: US)
  Receive Date: 20220830
  Receipt Date: 20220830
  Transmission Date: 20221027
  Serious: No
  Sender: FDA-Public Use
  Company Number: US-PFIZER INC-202201054993

PATIENT
  Age: 56 Year
  Sex: Male
  Weight: 136.05 kg

DRUGS (1)
  1. PAXLOVID [Suspect]
     Active Substance: NIRMATRELVIR\RITONAVIR
     Indication: COVID-19 treatment
     Dosage: UNK, 2X/DAY (2ND CYCLE)
     Dates: start: 20220805

REACTIONS (1)
  - Therapeutic product effect incomplete [Unknown]
